FAERS Safety Report 15539542 (Version 1)
Quarter: 2018Q4

REPORT INFORMATION
  Report Type: Other
  Country: DE (occurrence: DE)
  Receive Date: 20181023
  Receipt Date: 20181023
  Transmission Date: 20190205
  Serious: Yes (Life-Threatening, Hospitalization, Other)
  Sender: FDA-Public Use
  Company Number: DE-ACCORD-073633

PATIENT
  Age: 66 Year
  Sex: Male

DRUGS (17)
  1. VALGANCICLOVIR. [Suspect]
     Active Substance: VALGANCICLOVIR
     Indication: ANTIBIOTIC THERAPY
     Dosage: UNK UNK, UNKNOWN FREQ.
     Route: 048
  2. SULFAMETHOXAZOLE/TRIMETHOPRIM [Suspect]
     Active Substance: SULFAMETHOXAZOLE\TRIMETHOPRIM
     Indication: ANTIBIOTIC THERAPY
     Dosage: DAILY DOSE: 1920 MG MILLIGRAM(S) EVERY DAY
     Route: 048
     Dates: start: 20130402, end: 20130404
  3. PENTAMIDINE [Concomitant]
     Active Substance: PENTAMIDINE
     Route: 065
  4. METAMIZOLE SODIUM [Concomitant]
     Active Substance: METAMIZOLE SODIUM
     Route: 048
  5. ACETYLSALICYLIC ACID [Concomitant]
     Active Substance: ASPIRIN
     Route: 065
  6. MYCOPHENOLIC ACID. [Suspect]
     Active Substance: MYCOPHENOLIC ACID
     Indication: RENAL TRANSPLANT
     Dosage: DAILY DOSE: 1500 MG MILLIGRAM(S) EVERY DAY
     Route: 065
     Dates: start: 201208, end: 201210
  7. TACROLIMUS. [Suspect]
     Active Substance: TACROLIMUS
     Indication: PROPHYLAXIS AGAINST TRANSPLANT REJECTION
     Dosage: DAILY DOSE: 7.5 MG MILLIGRAM(S) EVERY DAY
     Route: 065
     Dates: start: 201208
  8. ANTITHYMOCYTE IMMUNOGLOBULIN [Suspect]
     Active Substance: THYMOCYTE IMMUNE GLOBULIN NOS
     Indication: PROPHYLAXIS AGAINST TRANSPLANT REJECTION
     Route: 065
     Dates: start: 201208, end: 201208
  9. PENTAMIDINE [Concomitant]
     Active Substance: PENTAMIDINE
     Indication: ANTIFUNGAL PROPHYLAXIS
     Route: 045
     Dates: start: 201209
  10. ACICLOVIR [Concomitant]
     Active Substance: ACYCLOVIR
     Dosage: ACICLOVIR AT A PROPHYLACTIC DOSAGE
     Route: 061
  11. TORASEMIDE [Concomitant]
     Active Substance: TORSEMIDE
     Route: 065
  12. SULFAMETHOXAZOLE/TRIMETHOPRIM [Suspect]
     Active Substance: SULFAMETHOXAZOLE\TRIMETHOPRIM
     Indication: NOCARDIOSIS
     Route: 048
  13. ISONIAZID. [Suspect]
     Active Substance: ISONIAZID
     Indication: ANTIBIOTIC PROPHYLAXIS
     Dosage: UNK UNK, UNKNOWN FREQ.
     Route: 065
  14. AMIKACIN. [Suspect]
     Active Substance: AMIKACIN
     Indication: ANTIBIOTIC THERAPY
     Dosage: UNK UNK, UNKNOWN FREQ.
     Route: 065
  15. ANTITHYMOCYTE IMMUNOGLOBULIN [Concomitant]
     Active Substance: THYMOCYTE IMMUNE GLOBULIN NOS
     Indication: RENAL TRANSPLANT
     Dosage: UNK UNK, UNKNOWN FREQ.
     Route: 065
  16. PREDNISOLON GALEN [Suspect]
     Active Substance: PREDNISOLONE
     Indication: PROPHYLAXIS AGAINST TRANSPLANT REJECTION
     Dosage: DAILY DOSE: 20 MG MILLIGRAM(S) EVERY DAY
     Route: 048
     Dates: start: 201208
  17. TORASEMIDE [Concomitant]
     Active Substance: TORSEMIDE
     Route: 065

REACTIONS (34)
  - Candida infection [Unknown]
  - Complications of transplanted kidney [Recovered/Resolved]
  - Drug level fluctuating [Unknown]
  - Cardiac failure [Unknown]
  - Subcutaneous abscess [Unknown]
  - Herpes simplex [Unknown]
  - Mycobacterium fortuitum infection [Unknown]
  - Delayed graft function [Unknown]
  - Tachycardia [Unknown]
  - Enterococcal infection [Unknown]
  - Acute kidney injury [Unknown]
  - Cytomegalovirus viraemia [Unknown]
  - Pneumonia [Unknown]
  - Hyponatraemia [Recovered/Resolved]
  - Hypoacusis [Unknown]
  - Inappropriate antidiuretic hormone secretion [Recovered/Resolved]
  - Lymphocele [Unknown]
  - Arthralgia [Recovered/Resolved]
  - Transplant failure [Recovered/Resolved]
  - Acinetobacter infection [Unknown]
  - Pulmonary tuberculosis [Unknown]
  - Acute kidney injury [Recovering/Resolving]
  - Hyperacusis [Unknown]
  - Ventricular extrasystoles [Unknown]
  - Genitourinary tract infection [Unknown]
  - Pleural effusion [Unknown]
  - Central nervous system lesion [Unknown]
  - Ventricular tachycardia [Unknown]
  - Tremor [Unknown]
  - Pneumonia [Recovered/Resolved]
  - Nocardiosis [Recovered/Resolved]
  - Urogenital infection bacterial [Unknown]
  - Hyperkalaemia [Unknown]
  - Pancreatic pseudocyst [Unknown]

NARRATIVE: CASE EVENT DATE: 201209
